FAERS Safety Report 20940581 (Version 1)
Quarter: 2022Q2

REPORT INFORMATION
  Report Type: Report from Study
  Country: DE (occurrence: DE)
  Receive Date: 20220609
  Receipt Date: 20220609
  Transmission Date: 20220721
  Serious: Yes (Hospitalization)
  Sender: FDA-Public Use
  Company Number: DE-JNJFOC-20210433275

PATIENT
  Sex: Male

DRUGS (10)
  1. SIMPONI [Suspect]
     Active Substance: GOLIMUMAB
     Indication: Psoriatic arthropathy
     Route: 058
     Dates: start: 20200908
  2. FOLIC ACID [Concomitant]
     Active Substance: FOLIC ACID
  3. LEVOTHYROXINE [Concomitant]
     Active Substance: LEVOTHYROXINE
  4. METAMIZOLE [Concomitant]
     Active Substance: METAMIZOLE
  5. CANDESARTAN [Concomitant]
     Active Substance: CANDESARTAN
  6. TORSEMIDE [Concomitant]
     Active Substance: TORSEMIDE
  7. PANTOPRAZOLE [Concomitant]
     Active Substance: PANTOPRAZOLE
  8. TRAMADOL [Concomitant]
     Active Substance: TRAMADOL
  9. ETORICOXIB [Concomitant]
     Active Substance: ETORICOXIB
  10. ASPIRIN [Concomitant]
     Active Substance: ASPIRIN
     Indication: Psoriatic arthropathy
     Route: 065

REACTIONS (9)
  - Adjustment disorder with anxiety [Not Recovered/Not Resolved]
  - Acute myocardial infarction [Recovered/Resolved]
  - Hypertensive crisis [Recovered/Resolved]
  - Carotid artery occlusion [Recovered/Resolved]
  - Hypercholesterolaemia [Unknown]
  - Periarthritis [Unknown]
  - Paraesthesia [Unknown]
  - Tooth infection [Unknown]
  - Gastrointestinal infection [Unknown]

NARRATIVE: CASE EVENT DATE: 20201115
